FAERS Safety Report 4768012-6 (Version None)
Quarter: 2005Q3

REPORT INFORMATION
  Report Type: 
  Country: None (occurrence: None)
  Receive Date: 20050913
  Receipt Date: 20050901
  Transmission Date: 20060218
  Serious: Yes (Hospitalization)
  Sender: FDA-Public Use
  Company Number: TPA2005A01008

PATIENT
  Age: 46 Year
  Sex: Female

DRUGS (19)
  1. ACTOS [Suspect]
     Indication: DIABETES MELLITUS NON-INSULIN-DEPENDENT
     Dosage: 30 MG, 1 IN 1 D, PER ORAL
     Route: 048
     Dates: start: 20000101
  2. GLIPIZIDE [Concomitant]
  3. PREVACID [Concomitant]
  4. DIOVAN (VALSARTAN) (160 MILLIGRAM) [Concomitant]
  5. FOLIC ACID (FOLIC ACID) (3 MILLIGRAM) [Concomitant]
  6. ASPIRIN (SALICYLIC ACID) (81 MILLIGRAM) [Concomitant]
  7. ZOLOFT [Concomitant]
  8. ANEMAGEN (ANEMAGEN) [Concomitant]
  9. DIAZEPAM (DIAZEPAM) (5 MILLIGRAM) [Concomitant]
  10. METHOTREXATE (METHOTREXATE (8 MILLILITRE (S)) [Concomitant]
  11. CALCIUM (CALCIUM /N/A/) [Concomitant]
  12. VITAMIN E [Concomitant]
  13. MULTIVITAMIN [Concomitant]
  14. CINNAMON (ALL OTHER NON-THERAPEUTIC PRODUCTS) [Concomitant]
  15. GARLIC (GARLIC) [Concomitant]
  16. SINGULAIR (MONTELUKAST) (10 MILLIGRAM) [Concomitant]
  17. ADVAIR DISKUS 100/50 [Concomitant]
  18. ALBUTEROL [Concomitant]
  19. SEA VEGGIE (ALL OTHER NON-THERAPEUTIC PRODUCTS) [Concomitant]

REACTIONS (10)
  - ARTHROPATHY [None]
  - FALL [None]
  - FLUID RETENTION [None]
  - KNEE ARTHROPLASTY [None]
  - MUSCLE DISORDER [None]
  - NERVE INJURY [None]
  - PAIN [None]
  - ROTATOR CUFF SYNDROME [None]
  - SCIATIC NERVE NEUROPATHY [None]
  - WEIGHT INCREASED [None]
